FAERS Safety Report 16750167 (Version 3)
Quarter: 2019Q4

REPORT INFORMATION
  Report Type: Spontaneous
  Country: US (occurrence: US)
  Receive Date: 20190828
  Receipt Date: 20191120
  Transmission Date: 20200122
  Serious: No
  Sender: FDA-Public Use
  Company Number: US-PFIZER INC-2016349017

PATIENT
  Age: 74 Year
  Sex: Male

DRUGS (12)
  1. LOSARTAN POTASSIUM/HCTZ [Concomitant]
     Active Substance: HYDROCHLOROTHIAZIDE\LOSARTAN POTASSIUM
     Dosage: 1 DF, DAILY, (HYDROCHLOROTHIAZIDE - 12.5 MG, LOSARTAN POTASSIUM - 50 MG)
     Route: 048
  2. CRESTOR [Concomitant]
     Active Substance: ROSUVASTATIN CALCIUM
     Dosage: 10 MG, DAILY
     Route: 048
  3. ATORVASTATIN CALCIUM. [Concomitant]
     Active Substance: ATORVASTATIN CALCIUM
     Dosage: 10 MG, 1X/DAY
     Route: 048
     Dates: start: 20170306
  4. GLIPIZIDE. [Concomitant]
     Active Substance: GLIPIZIDE
     Indication: BLOOD PRESSURE ABNORMAL
  5. METFORMIN [Concomitant]
     Active Substance: METFORMIN HYDROCHLORIDE
     Indication: DIABETES MELLITUS
     Dosage: 1500 MG, DAILY, (1 TAB PO AFTER MORNING MEAL AND 2 TABS PO AT HS)
     Route: 048
     Dates: start: 20160426
  6. LYRICA [Suspect]
     Active Substance: PREGABALIN
     Indication: VASCULAR INSUFFICIENCY
     Dosage: 100 MG, ALTERNATE DAY
  7. GLIPIZIDE. [Concomitant]
     Active Substance: GLIPIZIDE
     Indication: DIABETES MELLITUS
     Dosage: 5 MG, DAILY, (TAKE 2 TAB PO AFTER A.M. MEAL AND 1 AFTER P.M. MEAL)
     Route: 048
     Dates: start: 20160426
  8. METFORMIN [Concomitant]
     Active Substance: METFORMIN HYDROCHLORIDE
     Indication: BLOOD PRESSURE ABNORMAL
  9. SYMBICORT [Concomitant]
     Active Substance: BUDESONIDE\FORMOTEROL FUMARATE DIHYDRATE
     Dosage: UNK, 2X/DAY,(BUDESONIDE160MCG/ACT-FORMOTEROL FUMARATE DIHYDRATE4.5MCG/ACT)(2 INHALATIONS INHALED)
     Route: 055
  10. LYRICA [Suspect]
     Active Substance: PREGABALIN
     Indication: DIABETIC NEUROPATHY
     Dosage: 100 MG, 4X/DAY
  11. LYRICA [Suspect]
     Active Substance: PREGABALIN
     Indication: NEUROPATHY PERIPHERAL
  12. METFORMIN HCL [Concomitant]
     Active Substance: METFORMIN HYDROCHLORIDE
     Dosage: 500 MG (TAKE 1 TABLET BY MOUTH AFTER THE MORNING MEAL AND 2 TABLETS AT BED TIME)
     Route: 048

REACTIONS (1)
  - Hypoacusis [Unknown]
